FAERS Safety Report 23430935 (Version 2)
Quarter: 2024Q1

REPORT INFORMATION
  Report Type: Spontaneous
  Country: CO (occurrence: CO)
  Receive Date: 20240123
  Receipt Date: 20240305
  Transmission Date: 20240410
  Serious: Yes (Other)
  Sender: FDA-Public Use
  Company Number: CO-BAYER-2024A012252

PATIENT
  Sex: Male

DRUGS (1)
  1. EYLEA [Suspect]
     Active Substance: AFLIBERCEPT
     Indication: Product used for unknown indication
     Dosage: 2 MG, INTRAVITREAL INJECTION OF 2MG; 40MG/ML
     Route: 031
     Dates: end: 202309

REACTIONS (3)
  - Metamorphopsia [Unknown]
  - Macular degeneration [Unknown]
  - Inappropriate schedule of product administration [Unknown]
